FAERS Safety Report 24073322 (Version 3)
Quarter: 2024Q3

REPORT INFORMATION
  Report Type: Spontaneous
  Country: CO (occurrence: CO)
  Receive Date: 20240710
  Receipt Date: 20240930
  Transmission Date: 20241016
  Serious: No
  Sender: PFIZER
  Company Number: CO-PFIZER INC-PV202400083476

PATIENT
  Age: 9 Year
  Sex: Male

DRUGS (3)
  1. GENOTROPIN [Suspect]
     Active Substance: SOMATROPIN
     Dosage: 1 MG
  2. GENOTROPIN [Suspect]
     Active Substance: SOMATROPIN
     Dosage: 1 MG, 2 DAYS YES, AND 1 NO
     Dates: end: 202405
  3. GENOTROPIN [Suspect]
     Active Substance: SOMATROPIN
     Dosage: 1 MG, DAILY
     Dates: start: 20240618

REACTIONS (5)
  - Poor quality product administered [Unknown]
  - Wrong technique in device usage process [Unknown]
  - Injection site pain [Unknown]
  - Headache [Recovered/Resolved]
  - Dizziness [Recovered/Resolved]
